FAERS Safety Report 9949245 (Version 2)
Quarter: 2014Q2

REPORT INFORMATION
  Report Type: Spontaneous
  Country: GB (occurrence: GB)
  Receive Date: 20140304
  Receipt Date: 20140529
  Transmission Date: 20141212
  Serious: Yes (Death)
  Sender: FDA-Public Use
  Company Number: GB-JNJFOC-20140300076

PATIENT
  Age: 83 Year
  Sex: Female
  Weight: 100 kg

DRUGS (4)
  1. XARELTO [Suspect]
     Indication: ANTICOAGULANT THERAPY
     Route: 048
     Dates: start: 20140203, end: 20140207
  2. BUMETANIDE [Concomitant]
     Indication: FLUID RETENTION
     Route: 065
  3. CO-CODAMOL [Concomitant]
     Indication: PAIN
     Route: 065
  4. BISOPROLOL [Concomitant]
     Route: 065

REACTIONS (5)
  - Cardiac failure [Fatal]
  - Fluid retention [Fatal]
  - Renal failure acute [Fatal]
  - Blood pressure decreased [Fatal]
  - Condition aggravated [Fatal]
